FAERS Safety Report 24837605 (Version 1)
Quarter: 2025Q1

REPORT INFORMATION
  Report Type: Spontaneous
  Country: US (occurrence: None)
  Receive Date: 20250112
  Receipt Date: 20250112
  Transmission Date: 20250408
  Serious: No
  Sender: FDA-CTU
  Company Number: None

PATIENT
  Age: 37 Year
  Sex: Female
  Weight: 68.4 kg

DRUGS (1)
  1. KENALOG-40 [Suspect]
     Active Substance: TRIAMCINOLONE ACETONIDE
     Indication: Tenosynovitis stenosans
     Route: 058
     Dates: start: 20240708, end: 20240708

REACTIONS (2)
  - Injection site discolouration [None]
  - Injection site atrophy [None]

NARRATIVE: CASE EVENT DATE: 20240901
